FAERS Safety Report 5355739-0 (Version None)
Quarter: 2007Q2

REPORT INFORMATION
  Report Type: 
  Country: None (occurrence: None)
  Receive Date: 20070611
  Receipt Date: 20070611
  Transmission Date: 20071010
  Serious: Yes (Other)
  Sender: FDA-Public Use
  Company Number: None

PATIENT
  Age: 36 Year
  Sex: Male
  Weight: 79.3795 kg

DRUGS (4)
  1. FOCALIN [Suspect]
     Indication: CRYING
     Dosage: 20 MG ONCE DAILY PO
     Route: 048
     Dates: start: 20070310, end: 20070401
  2. FOCALIN [Suspect]
     Indication: NAUSEA
     Dosage: 20 MG ONCE DAILY PO
     Route: 048
     Dates: start: 20070310, end: 20070401
  3. FOCALIN [Suspect]
     Indication: NIGHTMARE
     Dosage: 20 MG ONCE DAILY PO
     Route: 048
     Dates: start: 20070310, end: 20070401
  4. RISPERDAL [Concomitant]

REACTIONS (6)
  - CRYING [None]
  - DEPRESSION [None]
  - HYPERHIDROSIS [None]
  - NAUSEA [None]
  - SLEEP TERROR [None]
  - WEIGHT INCREASED [None]
